FAERS Safety Report 6544678-5 (Version None)
Quarter: 2010Q1

REPORT INFORMATION
  Report Type: 
  Country: None (occurrence: None)
  Receive Date: 20100121
  Receipt Date: 20091221
  Transmission Date: 20100710
  Serious: No
  Sender: FDA-Public Use
  Company Number: US-BAYER-200943495NA

PATIENT
  Age: 73 Year
  Sex: Female
  Weight: 64 kg

DRUGS (6)
  1. ULTRAVIST (PHARMACY BULK) [Suspect]
     Indication: COMPUTERISED TOMOGRAM ABDOMEN
     Dosage: TOTAL DAILY DOSE: 95 ML  UNIT DOSE: 200 ML
     Route: 042
     Dates: start: 20091221, end: 20091221
  2. SYNTHROID [Concomitant]
  3. ALTACE [Concomitant]
  4. RAMIPRIL [Concomitant]
  5. PRILOSEC [Concomitant]
  6. FOSAMAX [Concomitant]

REACTIONS (3)
  - DIZZINESS [None]
  - HEAD DISCOMFORT [None]
  - NAUSEA [None]
